FAERS Safety Report 17654455 (Version 1)
Quarter: 2020Q2

REPORT INFORMATION
  Report Type: Spontaneous
  Country: US (occurrence: US)
  Receive Date: 20200409
  Receipt Date: 20200409
  Transmission Date: 20200713
  Serious: Yes (Hospitalization, Other)
  Sender: FDA-Public Use
  Company Number: None

PATIENT
  Age: 66 Year
  Sex: Male
  Weight: 90 kg

DRUGS (2)
  1. PACLITAXEL (PACLITAXEL 300MG/50MG INJ, VIL, 50ML [Suspect]
     Active Substance: PACLITAXEL
     Indication: PAIN
     Route: 042
     Dates: start: 20180323, end: 20180810
  2. CARBOPLATIN (CARBOPLATIN 50MGML/VILINJ) [Suspect]
     Active Substance: CARBOPLATIN
     Dates: start: 20180323, end: 20180810

REACTIONS (3)
  - Oedema peripheral [None]
  - Peripheral swelling [None]
  - Soft tissue swelling [None]

NARRATIVE: CASE EVENT DATE: 20180705
